FAERS Safety Report 6680725-8 (Version None)
Quarter: 2010Q2

REPORT INFORMATION
  Report Type: 
  Country: None (occurrence: None)
  Receive Date: 20100414
  Receipt Date: 20100331
  Transmission Date: 20101027
  Serious: Yes (Other)
  Sender: FDA-Public Use
  Company Number: PHEH2007US11484

PATIENT
  Sex: Male
  Weight: 69.841 kg

DRUGS (6)
  1. AREDIA [Suspect]
     Dosage: 90 MG, QMO
     Route: 042
     Dates: start: 19990422, end: 20020822
  2. ZOMETA [Suspect]
     Dosage: 4 MG, MONTHLY
     Route: 042
     Dates: start: 20020920
  3. WARFARIN SODIUM [Concomitant]
     Dosage: 1 MG, QD
     Route: 048
  4. ALEVE [Concomitant]
  5. NEURONTIN [Concomitant]
  6. FAMVIR                                  /UNK/ [Concomitant]
     Dosage: 500 MG, UNK

REACTIONS (27)
  - BIOPSY BONE ABNORMAL [None]
  - BIOPSY PERIPHERAL NERVE [None]
  - BONE SCAN ABNORMAL [None]
  - CHONDROCALCINOSIS [None]
  - EDENTULOUS [None]
  - EMPHYSEMA [None]
  - GENERAL ANAESTHESIA [None]
  - GINGIVAL EROSION [None]
  - GINGIVAL PAIN [None]
  - HYPERBARIC OXYGEN THERAPY [None]
  - HYPOAESTHESIA [None]
  - LUNG SQUAMOUS CELL CARCINOMA STAGE UNSPECIFIED [None]
  - NEURALGIA [None]
  - NON-SMALL CELL LUNG CANCER [None]
  - ORAL HERPES [None]
  - ORAL PAIN [None]
  - PAIN IN JAW [None]
  - PULMONARY MASS [None]
  - PURULENT DISCHARGE [None]
  - SCROTAL CYST [None]
  - SPINAL OSTEOARTHRITIS [None]
  - SURGERY [None]
  - SWELLING [None]
  - TENDERNESS [None]
  - TESTICULAR MASS [None]
  - TOOTH DISORDER [None]
  - TOOTH EROSION [None]
